FAERS Safety Report 15715347 (Version 1)
Quarter: 2018Q4

REPORT INFORMATION
  Report Type: Spontaneous
  Country: US (occurrence: US)
  Receive Date: 20181212
  Receipt Date: 20181212
  Transmission Date: 20190205
  Serious: Yes (Hospitalization)
  Sender: FDA-Public Use
  Company Number: None

PATIENT
  Sex: Male

DRUGS (10)
  1. CALCITRIOL. [Concomitant]
     Active Substance: CALCITRIOL
  2. VELTASSA [Concomitant]
     Active Substance: PATIROMER
  3. TACROLIMUS. [Suspect]
     Active Substance: TACROLIMUS
     Indication: PRODUCT USED FOR UNKNOWN INDICATION
     Route: 048
     Dates: start: 20180504
  4. TELMISARTAN. [Concomitant]
     Active Substance: TELMISARTAN
  5. NIFEDIPINE. [Concomitant]
     Active Substance: NIFEDIPINE
  6. PREDNISONE. [Concomitant]
     Active Substance: PREDNISONE
  7. POTASSIUM CITRATE. [Concomitant]
     Active Substance: POTASSIUM CITRATE
  8. METOPROL TAR [Concomitant]
  9. MYCOPHENOLIC [Concomitant]
     Active Substance: MYCOPHENOLIC ACID
  10. PROGRAF [Concomitant]
     Active Substance: TACROLIMUS\TACROLIMUS ANHYDROUS

REACTIONS (1)
  - Pneumonia [None]
